FAERS Safety Report 7128169-9 (Version None)
Quarter: 2010Q4

REPORT INFORMATION
  Report Type: 
  Country: None (occurrence: None)
  Receive Date: 20101130
  Receipt Date: 20101117
  Transmission Date: 20110411
  Serious: Yes (Hospitalization)
  Sender: FDA-Public Use
  Company Number: PHFR2010GB03798

PATIENT
  Sex: Female
  Weight: 95 kg

DRUGS (12)
  1. CLOZARIL [Suspect]
     Indication: SCHIZOPHRENIA
     Dosage: 75 MG MANE, 125 MG NOCTE
     Route: 048
     Dates: start: 20090720
  2. CLOZARIL [Suspect]
     Dosage: 25 MG, BID
  3. VALPROATE SODIUM [Concomitant]
     Dosage: 1000 MG, BID
  4. LANSOPRAZOLE [Concomitant]
     Dosage: UNK
  5. FLUOXETINE [Concomitant]
     Dosage: UNK
  6. GABAPENTIN [Concomitant]
     Dosage: 300 MG, TID
  7. BECLOMETHASONE DIPROPIONATE [Concomitant]
     Dosage: 200 UG, QID
  8. DOCUSATE SODIUM [Concomitant]
     Dosage: 100 MG, BID
  9. HYOSCINE HBR HYT [Concomitant]
     Dosage: 300 MG, BID
  10. FERROUS SULFATE TAB [Concomitant]
     Dosage: 200 MG, BID
  11. VITAMIN B COMPLEX [Concomitant]
     Dosage: UNK
  12. ORLISTAT [Concomitant]
     Dosage: 120 MG, BID

REACTIONS (5)
  - ABDOMINAL PAIN [None]
  - CHOLELITHIASIS [None]
  - DIARRHOEA [None]
  - DRUG EXPOSURE DURING PREGNANCY [None]
  - PNEUMONIA [None]
